FAERS Safety Report 9990569 (Version 1)
Quarter: 2014Q1

REPORT INFORMATION
  Report Type: Spontaneous
  Country: US (occurrence: US)
  Receive Date: 20140310
  Receipt Date: 20140310
  Transmission Date: 20141002
  Serious: No
  Sender: FDA-Public Use
  Company Number: US-ABBVIE-13P-163-1136962-00

PATIENT
  Age: 58 Year
  Sex: Female
  Weight: 79.45 kg

DRUGS (4)
  1. HUMIRA [Suspect]
     Indication: ANKYLOSING SPONDYLITIS
     Dates: start: 201302, end: 201305
  2. HUMIRA [Suspect]
     Indication: CROHN^S DISEASE
     Dates: start: 201305, end: 201307
  3. HUMIRA [Suspect]
     Indication: ANKYLOSING SPONDYLITIS
     Dates: start: 201307, end: 20130804
  4. HUMIRA [Suspect]
     Indication: CROHN^S DISEASE
     Dates: start: 20130811

REACTIONS (13)
  - Skin discolouration [Recovered/Resolved]
  - Fatigue [Recovered/Resolved]
  - Oropharyngeal pain [Recovered/Resolved]
  - Oropharyngeal pain [Recovered/Resolved]
  - Chills [Recovered/Resolved]
  - Rash [Recovered/Resolved]
  - Headache [Recovered/Resolved]
  - Pain [Recovered/Resolved]
  - Pain [Recovered/Resolved]
  - Malaise [Recovered/Resolved]
  - Injection site bruising [Recovered/Resolved]
  - Ankylosing spondylitis [Recovered/Resolved]
  - Crohn^s disease [Recovered/Resolved]
